FAERS Safety Report 4641769-0 (Version None)
Quarter: 2005Q2

REPORT INFORMATION
  Report Type: 
  Country: None (occurrence: None)
  Receive Date: 20050421
  Receipt Date: 20050415
  Transmission Date: 20051028
  Serious: Yes (Other)
  Sender: FDA-Public Use
  Company Number: US-MERCK-0504USA02571

PATIENT
  Sex: Male

DRUGS (2)
  1. DECADRON [Suspect]
     Route: 048
  2. TAXOTERE [Suspect]
     Indication: PROSTATE CANCER
     Route: 065

REACTIONS (2)
  - DEMENTIA [None]
  - PSYCHOTIC DISORDER [None]
